FAERS Safety Report 10551191 (Version 1)
Quarter: 2014Q4

REPORT INFORMATION
  Report Type: Spontaneous
  Country: US (occurrence: None)
  Receive Date: 20141028
  Receipt Date: 20141028
  Transmission Date: 20150529
  Serious: No
  Sender: FDA-Public Use
  Company Number: None

PATIENT

DRUGS (1)
  1. ALPRAZOLAM 0.25 [Suspect]
     Active Substance: ALPRAZOLAM
     Dosage: 21 TABS
     Route: 048

REACTIONS (4)
  - Product lot number issue [None]
  - Product barcode issue [None]
  - Product expiration date issue [None]
  - Product packaging issue [None]

NARRATIVE: CASE EVENT DATE: 20140909
